FAERS Safety Report 9508403 (Version 2)
Quarter: 2013Q3

REPORT INFORMATION
  Report Type: Report from Study
  Country: US (occurrence: US)
  Receive Date: 20130909
  Receipt Date: 20130909
  Transmission Date: 20140515
  Serious: Yes (Hospitalization)
  Sender: FDA-Public Use
  Company Number: US-ABBOTT-13P-163-1137088-00

PATIENT
  Sex: Female

DRUGS (1)
  1. CREON [Suspect]
     Indication: PANCREATIC INSUFFICIENCY
     Dosage: UNKNOWN

REACTIONS (4)
  - Pancreatitis acute [Unknown]
  - Hospitalisation [Unknown]
  - Food intolerance [Unknown]
  - Food craving [Unknown]
